FAERS Safety Report 13544825 (Version 3)
Quarter: 2017Q3

REPORT INFORMATION
  Report Type: Spontaneous
  Country: JP (occurrence: JP)
  Receive Date: 20170515
  Receipt Date: 20170718
  Transmission Date: 20171127
  Serious: Yes (Life-Threatening, Hospitalization, Other)
  Sender: FDA-Public Use
  Company Number: JP-GLAXOSMITHKLINE-JP2017JPN055589

PATIENT
  Age: 32 Year
  Sex: Female
  Weight: 60 kg

DRUGS (7)
  1. ABILIFY [Concomitant]
     Active Substance: ARIPIPRAZOLE
     Indication: BIPOLAR DISORDER
     Dosage: 12 MG, QD
  2. TOFRANIL [Concomitant]
     Active Substance: IMIPRAMINE HYDROCHLORIDE
     Indication: BIPOLAR DISORDER
     Dosage: 50 MG, TID
  3. ZYPREXA [Concomitant]
     Active Substance: OLANZAPINE
     Dosage: 5 MG, 1D
     Dates: start: 20170330
  4. ZYPREXA [Concomitant]
     Active Substance: OLANZAPINE
     Dosage: 10 MG, 1D
  5. LAMICTAL [Suspect]
     Active Substance: LAMOTRIGINE
     Indication: BIPOLAR DISORDER
     Dosage: 25 MG, QOD
     Route: 048
     Dates: start: 20170330, end: 20170412
  6. LAMICTAL [Suspect]
     Active Substance: LAMOTRIGINE
     Dosage: 25 MG, QD
     Route: 048
     Dates: start: 20170413, end: 20170416
  7. SOLANAX [Concomitant]
     Active Substance: ALPRAZOLAM
     Indication: BIPOLAR DISORDER
     Dosage: 0.4 MG, TID

REACTIONS (14)
  - Oropharyngeal pain [Unknown]
  - Lip erosion [Unknown]
  - Scab [Unknown]
  - Facial pain [Unknown]
  - Skin erosion [Unknown]
  - Pyrexia [Unknown]
  - Toxic epidermal necrolysis [Not Recovered/Not Resolved]
  - Aphthous ulcer [Unknown]
  - Blister [Unknown]
  - Lymphadenopathy [Unknown]
  - Malaise [Unknown]
  - Generalised erythema [Unknown]
  - Anticipatory anxiety [Unknown]
  - Oral mucosa erosion [Unknown]

NARRATIVE: CASE EVENT DATE: 20170412
